FAERS Safety Report 16865681 (Version 1)
Quarter: 2019Q3

REPORT INFORMATION
  Report Type: Spontaneous
  Country: US (occurrence: US)
  Receive Date: 20190930
  Receipt Date: 20190930
  Transmission Date: 20191005
  Serious: Yes (Other)
  Sender: FDA-Public Use
  Company Number: US-009507513-1909USA013971

PATIENT
  Sex: Female
  Weight: 49.89 kg

DRUGS (2)
  1. ZOLOFT [Concomitant]
     Active Substance: SERTRALINE HYDROCHLORIDE
     Dosage: UNK
     Dates: start: 201909
  2. NEXPLANON [Suspect]
     Active Substance: ETONOGESTREL
     Indication: CONTRACEPTION
     Dosage: 1 ROD, 3 YEARS
     Route: 059
     Dates: start: 2017

REACTIONS (6)
  - Malaise [Not Recovered/Not Resolved]
  - Complication of device removal [Not Recovered/Not Resolved]
  - Complication associated with device [Not Recovered/Not Resolved]
  - Device dislocation [Not Recovered/Not Resolved]
  - Post procedural contusion [Not Recovered/Not Resolved]
  - Hypoaesthesia [Not Recovered/Not Resolved]

NARRATIVE: CASE EVENT DATE: 2017
